FAERS Safety Report 4896837-5 (Version None)
Quarter: 2006Q1

REPORT INFORMATION
  Report Type: 
  Country: None (occurrence: None)
  Receive Date: 20060131
  Receipt Date: 20060123
  Transmission Date: 20060701
  Serious: Yes (Other)
  Sender: FDA-Public Use
  Company Number: US-AVENTIS-200610885US

PATIENT
  Sex: Male
  Weight: 79.5 kg

DRUGS (5)
  1. LANTUS [Suspect]
     Indication: DIABETES MELLITUS
     Dosage: DOSE: 35 UNITS, INCREASED TO 40 UNITS
  2. LIPITOR [Concomitant]
     Dosage: DOSE: UNKNOWN
  3. HUMALOG [Concomitant]
     Dosage: DOSE: SLIDING SCALE
  4. VITAMIN E [Concomitant]
     Dosage: DOSE UNIT: UNITS
  5. ASCORBIC ACID [Concomitant]
     Dosage: DOSE: UNKNOWN

REACTIONS (5)
  - FOOT AMPUTATION [None]
  - HYPERGLYCAEMIA [None]
  - HYPOGLYCAEMIA [None]
  - LOSS OF CONSCIOUSNESS [None]
  - MYOCARDIAL INFARCTION [None]
